FAERS Safety Report 10925829 (Version 4)
Quarter: 2020Q2

REPORT INFORMATION
  Report Type: Spontaneous
  Country: US (occurrence: US)
  Receive Date: 20150318
  Receipt Date: 20200424
  Transmission Date: 20200713
  Serious: Yes (Other)
  Sender: FDA-Public Use
  Company Number: US-PFIZER INC-2015097274

PATIENT
  Age: 29 Year
  Sex: Male

DRUGS (1)
  1. PRISTIQ EXTENDED-RELEASE [Suspect]
     Active Substance: DESVENLAFAXINE SUCCINATE
     Indication: BIPOLAR DISORDER
     Dosage: UNK
     Dates: end: 201503

REACTIONS (9)
  - Malaise [Unknown]
  - Disorientation [Unknown]
  - Product use in unapproved indication [Unknown]
  - Mental impairment [Unknown]
  - Asthenia [Unknown]
  - Memory impairment [Unknown]
  - Off label use [Unknown]
  - Drug withdrawal syndrome [Unknown]
  - Feeling abnormal [Unknown]

NARRATIVE: CASE EVENT DATE: 2015
